FAERS Safety Report 18676373 (Version 1)
Quarter: 2020Q4

REPORT INFORMATION
  Report Type: Spontaneous
  Country: US (occurrence: US)
  Receive Date: 20201229
  Receipt Date: 20201229
  Transmission Date: 20210114
  Serious: Yes (Death)
  Sender: FDA-Public Use
  Company Number: None

PATIENT
  Age: 68 Year
  Sex: Male
  Weight: 89 kg

DRUGS (18)
  1. CEFEPIME [Concomitant]
     Active Substance: CEFEPIME HYDROCHLORIDE
     Dates: start: 20201220, end: 20201223
  2. AZITHROMYCIN ANHYDROUS. [Concomitant]
     Active Substance: AZITHROMYCIN ANHYDROUS
     Dates: start: 20201213, end: 20201218
  3. REMEDESIVIR [Concomitant]
     Dates: start: 20201214, end: 20201216
  4. FENTANYL. [Concomitant]
     Active Substance: FENTANYL
     Dates: start: 20201214, end: 20201223
  5. BAMLANIVIMAB. [Suspect]
     Active Substance: BAMLANIVIMAB
     Indication: COVID-19
     Dosage: ?          OTHER FREQUENCY:ONCE;?
     Route: 042
     Dates: start: 20201213, end: 20201213
  6. VENLAFAXINE [Concomitant]
     Active Substance: VENLAFAXINE HYDROCHLORIDE
     Dates: start: 20201215, end: 20201222
  7. CISATRACURIUM. [Concomitant]
     Active Substance: CISATRACURIUM
     Dates: start: 20201215, end: 20201222
  8. INSULIN ASPART [Concomitant]
     Active Substance: INSULIN ASPART
     Dates: start: 20201214, end: 20201223
  9. CEFTRIAXONE. [Concomitant]
     Active Substance: CEFTRIAXONE
     Dates: start: 20201213, end: 20201218
  10. AMIODARONE [Concomitant]
     Active Substance: AMIODARONE
     Dates: start: 20201214, end: 20201223
  11. HEPARIN [Concomitant]
     Active Substance: HEPARIN SODIUM
     Dates: start: 20201214, end: 20201223
  12. VANCOMYCIN [Concomitant]
     Active Substance: VANCOMYCIN
     Dates: start: 20201220, end: 20201223
  13. QUETIAPINE. [Concomitant]
     Active Substance: QUETIAPINE
     Dates: start: 20201219, end: 20201221
  14. DEXMEDETOMIDINE. [Concomitant]
     Active Substance: DEXMEDETOMIDINE
     Dates: start: 20201214, end: 20201223
  15. DEXAMETHASONE. [Concomitant]
     Active Substance: DEXAMETHASONE
     Dates: start: 20201213, end: 20201223
  16. FUROSEMIDE. [Concomitant]
     Active Substance: FUROSEMIDE
     Dates: start: 20201218, end: 20201220
  17. ALBUTEROL/IPRATROPIUM [Concomitant]
     Active Substance: ALBUTEROL\IPRATROPIUM
     Dates: start: 20201217, end: 20201222
  18. PANTOPRAZOLE [Concomitant]
     Active Substance: PANTOPRAZOLE
     Dates: start: 20201215, end: 20201221

REACTIONS (2)
  - Hypoxia [None]
  - General physical health deterioration [None]

NARRATIVE: CASE EVENT DATE: 20201223
